FAERS Safety Report 21838353 (Version 1)
Quarter: 2023Q1

REPORT INFORMATION
  Report Type: Spontaneous
  Country: CA (occurrence: CA)
  Receive Date: 20230109
  Receipt Date: 20230109
  Transmission Date: 20230418
  Serious: Yes (Life-Threatening, Other)
  Sender: FDA-Public Use
  Company Number: CA-TEVA-2023-CA-2842693

PATIENT
  Age: 64 Year
  Sex: Female

DRUGS (7)
  1. AMIODARONE [Suspect]
     Active Substance: AMIODARONE
     Indication: Atrial fibrillation
     Dosage: 800 MILLIGRAM DAILY;
     Route: 065
  2. ALENDRONATE SODIUM [Concomitant]
     Active Substance: ALENDRONATE SODIUM
     Indication: Product used for unknown indication
  3. MELOXICAM [Concomitant]
     Active Substance: MELOXICAM
     Indication: Product used for unknown indication
  4. OXYCODONE [Concomitant]
     Active Substance: OXYCODONE
     Indication: Product used for unknown indication
     Dosage: FREQUENCY : AS REQUIRED
  5. PAROXETINE [Concomitant]
     Active Substance: PAROXETINE
     Indication: Depression
  6. TETRACYCLINE [Concomitant]
     Active Substance: TETRACYCLINE
     Indication: Respiratory tract infection
     Dosage: 1000 MILLIGRAM DAILY;
  7. WARFARIN [Concomitant]
     Active Substance: WARFARIN
     Indication: Product used for unknown indication

REACTIONS (9)
  - Cardiac arrest [Unknown]
  - Cardiotoxicity [Unknown]
  - Cardioversion [Unknown]
  - Drug-induced liver injury [Unknown]
  - Hyperthyroidism [Unknown]
  - Pulmonary toxicity [Unknown]
  - Resuscitation [Unknown]
  - Torsade de pointes [Unknown]
  - Product use issue [Unknown]
